FAERS Safety Report 4696712-5 (Version None)
Quarter: 2005Q2

REPORT INFORMATION
  Report Type: 
  Country: None (occurrence: None)
  Receive Date: 20050620
  Receipt Date: 20050606
  Transmission Date: 20051028
  Serious: Yes (Hospitalization)
  Sender: FDA-Public Use
  Company Number: FABR-11082

PATIENT
  Age: 43 Year
  Sex: Male
  Weight: 56 kg

DRUGS (10)
  1. FABRAZYME [Suspect]
     Indication: FABRY'S DISEASE
     Dosage: 1 MG/KG IV
     Route: 042
     Dates: start: 20041201
  2. PROGRAF [Concomitant]
  3. CELLCEPT [Concomitant]
  4. PREDNISONE [Concomitant]
  5. TOPROL-XL [Concomitant]
  6. LIPITOR [Concomitant]
  7. ASPIRIN [Concomitant]
  8. GEMFIBROZIL [Concomitant]
  9. MULTI-VITAMIN [Concomitant]
  10. OSCAL [Concomitant]

REACTIONS (10)
  - ATELECTASIS [None]
  - CARDIAC MURMUR [None]
  - DYSPNOEA [None]
  - MUSCLE STRAIN [None]
  - MUSCULOSKELETAL CHEST PAIN [None]
  - PRODUCTIVE COUGH [None]
  - RHINORRHOEA [None]
  - SCAR [None]
  - SPUTUM DISCOLOURED [None]
  - VENTRICULAR HYPERTROPHY [None]
